FAERS Safety Report 7130352-3 (Version None)
Quarter: 2010Q4

REPORT INFORMATION
  Report Type: 
  Country: None (occurrence: None)
  Receive Date: 20101201
  Receipt Date: 20101029
  Transmission Date: 20110411
  Serious: Yes (Death)
  Sender: FDA-Public Use
  Company Number: GB-AMGEN-GBRCT2010002613

PATIENT

DRUGS (9)
  1. ETANERCEPT [Suspect]
     Indication: RHEUMATOID ARTHRITIS
     Dosage: 25 MG, 2 TIMES/WK
     Dates: start: 20031128
  2. METHOTREXATE [Concomitant]
     Dosage: UNKNOWN
  3. ACTONEL [Concomitant]
     Dosage: UNKNOWN
  4. CODEINE PHOSPHATE/PARACETAMOL [Concomitant]
     Dosage: UNKNOWN
  5. METFORMIN HCL [Concomitant]
     Dosage: UNKNOWN
  6. FOLIC ACID [Concomitant]
     Dosage: UNKNOWN
  7. GLICLAZIDE [Concomitant]
     Dosage: UNKNOWN
  8. HYDROXYCHLOROQUINE SULFATE [Concomitant]
     Dosage: UNKNOWN
  9. FELODIPINE [Concomitant]
     Dosage: UNKNOWN

REACTIONS (1)
  - LUNG NEOPLASM MALIGNANT [None]
